FAERS Safety Report 22201565 (Version 1)
Quarter: 2023Q2

REPORT INFORMATION
  Report Type: Spontaneous
  Country: US (occurrence: None)
  Receive Date: 20230411
  Receipt Date: 20230411
  Transmission Date: 20230722
  Serious: Yes (Disabling)
  Sender: FDA-Public Use
  Company Number: None

PATIENT
  Age: 31 Year
  Sex: Female
  Weight: 49.5 kg

DRUGS (2)
  1. HYLENEX RECOMBINANT [Suspect]
     Active Substance: HYALURONIDASE (HUMAN RECOMBINANT)
     Indication: Product used for unknown indication
     Dosage: 2 INJECTIONS 14 DAYS APART  SUBCUTANEOUS?
     Route: 058
     Dates: start: 20220312, end: 20220326
  2. ALBUTEROL [Concomitant]
     Active Substance: ALBUTEROL

REACTIONS (22)
  - Skin laxity [None]
  - Skin disorder [None]
  - Skin atrophy [None]
  - Pallor [None]
  - Vein disorder [None]
  - Dry skin [None]
  - Hypotonia [None]
  - Skin wrinkling [None]
  - Arthralgia [None]
  - Pain in extremity [None]
  - Joint noise [None]
  - Pain [None]
  - Pelvic floor muscle weakness [None]
  - Atrophic vulvovaginitis [None]
  - Incontinence [None]
  - Vision blurred [None]
  - Periorbital pain [None]
  - Photophobia [None]
  - Skin burning sensation [None]
  - Erythema of eyelid [None]
  - Fatigue [None]
  - Brain fog [None]

NARRATIVE: CASE EVENT DATE: 20220326
